FAERS Safety Report 10309943 (Version 1)
Quarter: 2014Q3

REPORT INFORMATION
  Report Type: Spontaneous
  Country: US (occurrence: None)
  Receive Date: 20140715
  Receipt Date: 20140715
  Transmission Date: 20150326
  Serious: No
  Sender: FDA-Public Use
  Company Number: None

PATIENT
  Age: 36 Year
  Sex: Female
  Weight: 56.7 kg

DRUGS (7)
  1. CYMBALTA [Suspect]
     Active Substance: DULOXETINE HYDROCHLORIDE
     Indication: DEPRESSION
     Route: 048
     Dates: start: 20140714
  2. CYMBALTA [Suspect]
     Active Substance: DULOXETINE HYDROCHLORIDE
     Indication: ANXIETY
     Route: 048
     Dates: start: 20140714
  3. LAMICTAL [Concomitant]
     Active Substance: LAMOTRIGINE
  4. KLONOPIN [Concomitant]
     Active Substance: CLONAZEPAM
  5. TOPAMAX [Concomitant]
     Active Substance: TOPIRAMATE
  6. VIMPAT [Concomitant]
     Active Substance: LACOSAMIDE
  7. MULTIVITAMINS [Concomitant]
     Active Substance: VITAMINS

REACTIONS (11)
  - Anxiety [None]
  - Headache [None]
  - Convulsion [None]
  - Bradyphrenia [None]
  - Paraesthesia [None]
  - Mood swings [None]
  - Impaired work ability [None]
  - Nausea [None]
  - Pain [None]
  - Fatigue [None]
  - Dizziness [None]

NARRATIVE: CASE EVENT DATE: 20140710
